FAERS Safety Report 15204518 (Version 1)
Quarter: 2018Q3

REPORT INFORMATION
  Report Type: Spontaneous
  Country: US (occurrence: US)
  Receive Date: 20180726
  Receipt Date: 20180726
  Transmission Date: 20181010
  Serious: No
  Sender: FDA-Public Use
  Company Number: US-SA-2018SA198096

PATIENT
  Age: 69 Year
  Sex: Male

DRUGS (1)
  1. ALLEGRA ALLERGY [Suspect]
     Active Substance: FEXOFENADINE HYDROCHLORIDE
     Indication: DYSPNOEA
     Dosage: UNK, BID
     Dates: start: 1981

REACTIONS (3)
  - Retching [Unknown]
  - Vomiting [Unknown]
  - Product odour abnormal [Unknown]
